FAERS Safety Report 20947324 (Version 1)
Quarter: 2022Q2

REPORT INFORMATION
  Report Type: Spontaneous
  Country: US (occurrence: None)
  Receive Date: 20220610
  Receipt Date: 20220610
  Transmission Date: 20220721
  Serious: Yes (Hospitalization)
  Sender: FDA-Public Use
  Company Number: US-FARMAPROD-202206-1009

PATIENT
  Sex: Female

DRUGS (14)
  1. OXERVATE [Suspect]
     Active Substance: CENEGERMIN-BKBJ
     Indication: Neurotrophic keratopathy
     Route: 047
     Dates: start: 20220502
  2. OXERVATE [Suspect]
     Active Substance: CENEGERMIN-BKBJ
     Indication: Hypoaesthesia eye
  3. FISH OIL [Concomitant]
     Active Substance: FISH OIL
     Dosage: 340-1000MG
  4. ROSUVASTATIN CALCIUM [Concomitant]
     Active Substance: ROSUVASTATIN CALCIUM
  5. FUROSEMIDE [Concomitant]
     Active Substance: FUROSEMIDE
  6. TAGRISSO [Concomitant]
     Active Substance: OSIMERTINIB
  7. SULFAMETHOXAZOLE\TRIMETHOPRIM [Concomitant]
     Active Substance: SULFAMETHOXAZOLE\TRIMETHOPRIM
  8. XARELTO [Concomitant]
     Active Substance: RIVAROXABAN
  9. CHLORPHENIRAMINE MALEATE [Concomitant]
     Active Substance: CHLORPHENIRAMINE MALEATE
  10. SERTRALINE HYDROCHLORIDE [Concomitant]
     Active Substance: SERTRALINE HYDROCHLORIDE
  11. ERYTHROMYCIN [Concomitant]
     Active Substance: ERYTHROMYCIN
     Dosage: 5 MG/GRAM
  12. DEXAMETHASONE [Concomitant]
     Active Substance: DEXAMETHASONE
  13. POLYETHYLENE GLYCOL 3350 [Concomitant]
     Active Substance: POLYETHYLENE GLYCOL 3350
     Dosage: PACKET
  14. FAMOTIDINE [Concomitant]
     Active Substance: FAMOTIDINE

REACTIONS (2)
  - Circulatory collapse [Unknown]
  - Product dose omission issue [Unknown]
